FAERS Safety Report 8701507 (Version 2)
Quarter: 2013Q4

REPORT INFORMATION
  Report Type: Spontaneous
  Country: US (occurrence: US)
  Receive Date: 20120802
  Receipt Date: 20131031
  Transmission Date: 20140711
  Serious: Yes (Hospitalization, Other)
  Sender: FDA-Public Use
  Company Number: US-009507513-1207USA011463

PATIENT
  Age: 79 Year
  Sex: Male

DRUGS (18)
  1. ZOCOR [Suspect]
     Dosage: 20 MG, QD
     Route: 048
  2. ZOCOR [Suspect]
     Dosage: 40 MG, QD
     Route: 048
  3. AMLODIPINE BESYLATE [Suspect]
     Dosage: 10 MG, QD
  4. FINASTERIDE [Suspect]
     Dosage: 5 MG, QD
  5. GEMFIBROZIL [Suspect]
     Dosage: 600 MG, BID
  6. DOXAZOSIN MESYLATE [Suspect]
     Dosage: 8 MG, QD
  7. HYDRALAZINE [Concomitant]
  8. ASPIRIN [Concomitant]
     Dosage: 81 MG, UNKNOWN
  9. TRAVOPROST [Concomitant]
  10. LACTULOSE [Concomitant]
     Dosage: 20 MG, PRN
  11. ERGOCALCIFEROL [Concomitant]
     Dosage: 50000 IU, UNK
  12. LISINOPRIL [Concomitant]
     Dosage: 20 MG, UNKNOWN
  13. METOPROLOL [Concomitant]
     Dosage: 200 MG, UNKNOWN
  14. INSULIN GLARGINE [Concomitant]
     Dosage: 70 IU, UNKNOWN
  15. FUROSEMIDE [Concomitant]
     Dosage: 40 MG, UNKNOWN
  16. LEVOTHYROXINE SODIUM [Concomitant]
     Dosage: 88 MICROGRAM, QD
  17. FERROUS SULFATE [Concomitant]
     Dosage: 325 MG, QD
  18. SODIUM POLYSTYRENE SULFONATE [Concomitant]
     Dosage: 30 G, QD

REACTIONS (6)
  - Renal failure chronic [Unknown]
  - Drug interaction [Unknown]
  - Abdominal pain [Unknown]
  - Myopathy [Unknown]
  - Rhabdomyolysis [Unknown]
  - Abdominal distension [Unknown]
